FAERS Safety Report 14037520 (Version 3)
Quarter: 2024Q3

REPORT INFORMATION
  Report Type: Report from Study
  Country: JP (occurrence: JP)
  Receive Date: 20171004
  Receipt Date: 20240905
  Transmission Date: 20241016
  Serious: Yes (Death, Other)
  Sender: AMGEN
  Company Number: JP-KYOWAKIRIN-2017JPN-NSP000647AA

PATIENT
  Age: 80 Year
  Sex: Male
  Weight: 55 kg

DRUGS (14)
  1. DARBEPOETIN ALFA [Suspect]
     Active Substance: DARBEPOETIN ALFA
     Indication: Myelodysplastic syndrome
     Dosage: 240 MICROGRAM, QWK
     Route: 058
     Dates: start: 20160106, end: 20160323
  2. DARBEPOETIN ALFA [Suspect]
     Active Substance: DARBEPOETIN ALFA
     Dosage: 240 MICROGRAM, UNK
     Route: 058
     Dates: start: 20160406, end: 20160406
  3. OLOPATADINE HYDROCHLORIDE [Concomitant]
     Active Substance: OLOPATADINE HYDROCHLORIDE
     Indication: Rhinitis allergic
     Dosage: 10 MG, UNK
     Route: 048
     Dates: end: 20160407
  4. PLAVIX [Concomitant]
     Active Substance: CLOPIDOGREL BISULFATE
     Indication: Peripheral arterial occlusive disease
     Dosage: 75 MG, UNK
     Route: 048
     Dates: end: 20160407
  5. CILOSTAZOL [Concomitant]
     Active Substance: CILOSTAZOL
     Indication: Peripheral arterial occlusive disease
     Dosage: 200 MG, UNK
     Route: 048
     Dates: end: 20160407
  6. LINAGLIPTIN [Concomitant]
     Active Substance: LINAGLIPTIN
     Indication: Diabetes mellitus
     Dosage: 5 MG, UNK
     Route: 048
     Dates: end: 20160407
  7. NEXIUM [Concomitant]
     Active Substance: ESOMEPRAZOLE MAGNESIUM
     Indication: Gastrointestinal mucosal disorder
     Dosage: 20 MG, UNK
     Route: 048
     Dates: end: 20160407
  8. REBAMIPIDE [Concomitant]
     Active Substance: REBAMIPIDE
     Indication: Gastrointestinal mucosal disorder
     Dosage: 300 MG, UNK
     Route: 048
     Dates: end: 20160407
  9. GOODMIN [Concomitant]
     Active Substance: BROTIZOLAM
     Indication: Insomnia
     Dosage: 0.25 MG, UNK
     Route: 048
     Dates: end: 20160407
  10. ROZEREM [Concomitant]
     Active Substance: RAMELTEON
     Indication: Insomnia
     Dosage: 8 MG, UNK
     Route: 048
     Dates: end: 20160407
  11. AMEZINIUM METILSULFATE [Concomitant]
     Active Substance: AMEZINIUM METILSULFATE
     Indication: Dialysis hypotension
     Dosage: 20 MG, UNK
     Route: 048
     Dates: end: 20160407
  12. DROXIDOPA [Concomitant]
     Active Substance: DROXIDOPA
     Indication: Dialysis hypotension
     Dosage: 100 MG, UNK
     Route: 048
     Dates: end: 20160407
  13. METHYLCOBALAMIN [Concomitant]
     Active Substance: METHYLCOBALAMIN
     Indication: Diabetic neuropathy
     Dosage: 1500 MICROGRAM
     Route: 048
     Dates: start: 20160307, end: 20160407
  14. CALCIUM CARBONATE [Concomitant]
     Active Substance: CALCIUM CARBONATE
     Indication: Hyperphosphataemia
     Dosage: 1000 MG, UNK
     Route: 048
     Dates: end: 20160407

REACTIONS (1)
  - Myelodysplastic syndrome [Fatal]

NARRATIVE: CASE EVENT DATE: 20160409
